FAERS Safety Report 16570146 (Version 1)
Quarter: 2019Q3

REPORT INFORMATION
  Report Type: Spontaneous
  Country: FR (occurrence: FR)
  Receive Date: 20190715
  Receipt Date: 20190715
  Transmission Date: 20191004
  Serious: Yes (Hospitalization)
  Sender: FDA-Public Use
  Company Number: FR-ROCHE-2353740

PATIENT
  Age: 91 Year
  Sex: Male
  Weight: 87.6 kg

DRUGS (15)
  1. LOXEN [NICARDIPINE HYDROCHLORIDE] [Concomitant]
     Active Substance: NICARDIPINE HYDROCHLORIDE
  2. AMIODARONE [Concomitant]
     Active Substance: AMIODARONE
  3. ATORVASTATINE [ATORVASTATIN] [Concomitant]
     Active Substance: ATORVASTATIN
  4. TAREG [Concomitant]
     Active Substance: VALSARTAN
  5. OXYNORM [Suspect]
     Active Substance: OXYCODONE HYDROCHLORIDE
     Indication: PAIN
     Route: 048
     Dates: end: 20190513
  6. FENTANYL. [Suspect]
     Active Substance: FENTANYL
     Indication: PAIN
     Route: 062
  7. FUROSEMIDE. [Concomitant]
     Active Substance: FUROSEMIDE
  8. XELODA [Suspect]
     Active Substance: CAPECITABINE
     Indication: METASTATIC SQUAMOUS CELL CARCINOMA
     Route: 048
     Dates: end: 201805
  9. GALVUS [Concomitant]
     Active Substance: VILDAGLIPTIN
  10. NOVORAPID [Concomitant]
     Active Substance: INSULIN ASPART
  11. DIFFU K [Concomitant]
     Active Substance: POTASSIUM CHLORIDE
  12. INNOHEP [Concomitant]
     Active Substance: TINZAPARIN SODIUM
  13. ABASAGLAR [Concomitant]
     Active Substance: INSULIN GLARGINE
  14. PRIMPERAN [Concomitant]
     Active Substance: METOCLOPRAMIDE HYDROCHLORIDE
  15. DOLIPRANE [Concomitant]
     Active Substance: ACETAMINOPHEN

REACTIONS (3)
  - Confusional state [Recovered/Resolved]
  - Acute kidney injury [Recovering/Resolving]
  - Somnolence [Recovered/Resolved]

NARRATIVE: CASE EVENT DATE: 201905
